FAERS Safety Report 9216015 (Version 1)
Quarter: 2013Q2

REPORT INFORMATION
  Report Type: Spontaneous
  Country: US (occurrence: US)
  Receive Date: 20130408
  Receipt Date: 20130408
  Transmission Date: 20140414
  Serious: Yes (Death, Other)
  Sender: FDA-Public Use
  Company Number: US-JNJFOC-20130402609

PATIENT
  Sex: 0

DRUGS (17)
  1. DOXORUBICIN [Suspect]
     Indication: HODGKIN^S DISEASE RECURRENT
     Route: 042
  2. PROCARBAZINE [Suspect]
     Indication: HODGKIN^S DISEASE RECURRENT
     Dosage: SECONDARY CHEMOTHERAPY
     Route: 065
  3. PROCARBAZINE [Suspect]
     Indication: HODGKIN^S DISEASE RECURRENT
     Dosage: PRIMARY CHEMOTHERAPY
     Route: 065
  4. PROCARBAZINE [Suspect]
     Indication: HODGKIN^S DISEASE
     Dosage: PRIMARY CHEMOTHERAPY
     Route: 065
  5. PROCARBAZINE [Suspect]
     Indication: HODGKIN^S DISEASE
     Dosage: SECONDARY CHEMOTHERAPY
     Route: 065
  6. MELPHALAN [Suspect]
     Indication: HODGKIN^S DISEASE
     Route: 065
  7. VINBLASTINE [Suspect]
     Indication: HODGKIN^S DISEASE RECURRENT
     Dosage: SECONDARY CHEMOTHERAPY
     Route: 065
  8. VINBLASTINE [Suspect]
     Indication: HODGKIN^S DISEASE RECURRENT
     Dosage: PRIMARY CHEMOTHERAPY
     Route: 065
  9. RADIOTHERAPY [Suspect]
     Indication: HODGKIN^S DISEASE
     Dosage: 44 GRAY (GY)
     Route: 065
  10. BLEOMYCIN [Suspect]
     Indication: HODGKIN^S DISEASE RECURRENT
     Route: 065
  11. MECHLORETHAMINE [Suspect]
     Indication: HODGKIN^S DISEASE RECURRENT
     Route: 065
  12. VINCRISTINE [Suspect]
     Indication: HODGKIN^S DISEASE RECURRENT
     Route: 065
  13. PREDNISONE [Suspect]
     Indication: HODGKIN^S DISEASE RECURRENT
     Route: 065
  14. CYCLOPHOSPHAMIDE [Suspect]
     Indication: HODGKIN^S DISEASE RECURRENT
     Route: 065
  15. CHLORAMBUCIL [Suspect]
     Indication: HODGKIN^S DISEASE RECURRENT
     Route: 065
  16. ETOPOSIDE [Suspect]
     Indication: HODGKIN^S DISEASE RECURRENT
     Route: 065
  17. DACARBAZINE [Suspect]
     Indication: HODGKIN^S DISEASE RECURRENT
     Route: 065

REACTIONS (2)
  - Acute myeloid leukaemia [Fatal]
  - Myelodysplastic syndrome [Fatal]
